FAERS Safety Report 7639061-5 (Version None)
Quarter: 2011Q3

REPORT INFORMATION
  Report Type: 
  Country: None (occurrence: None)
  Receive Date: 20110726
  Receipt Date: 20110726
  Transmission Date: 20111222
  Serious: Yes (Hospitalization)
  Sender: FDA-Public Use
  Company Number: None

PATIENT
  Age: 59 Year
  Sex: Male
  Weight: 109.1 kg

DRUGS (20)
  1. DILAUDID INTRATHECAL PUMP [Concomitant]
  2. MBL MOUTHWASH, [Concomitant]
  3. RITALIN [Concomitant]
  4. ATENOLOL [Concomitant]
  5. MIRTAZAPINE [Concomitant]
  6. SENNA, [Concomitant]
  7. TERAZOSIN HCL [Concomitant]
  8. SERZONE [Concomitant]
  9. COLACE [Concomitant]
  10. ONDANSETRON HCL [Concomitant]
  11. REGLAN [Concomitant]
  12. SEROQUEL [Concomitant]
  13. ABRAXANE [Suspect]
     Indication: TONGUE NEOPLASM MALIGNANT STAGE UNSPECIFIED
     Dosage: 50 MG/M2 IV WEEKLY
     Route: 042
     Dates: start: 20110620, end: 20110718
  14. LORAZEPAM [Concomitant]
  15. METHADONE ORAL SOLUTION [Concomitant]
  16. CARBOPLATIN [Suspect]
     Indication: TONGUE NEOPLASM MALIGNANT STAGE UNSPECIFIED
     Dosage: 1.5  AUC IV WEEKLY
     Route: 042
     Dates: start: 20110620, end: 20110718
  17. DIFLUCAN [Concomitant]
  18. OXYCODONE HCL [Concomitant]
  19. SIMVASTATIN [Concomitant]
  20. TEGRETOL [Concomitant]

REACTIONS (3)
  - FATIGUE [None]
  - DIZZINESS [None]
  - NAUSEA [None]
